FAERS Safety Report 17974858 (Version 1)
Quarter: 2020Q3

REPORT INFORMATION
  Report Type: Spontaneous
  Country: NG (occurrence: NG)
  Receive Date: 20200702
  Receipt Date: 20200702
  Transmission Date: 20201103
  Serious: Yes (Death, Hospitalization, Other)
  Sender: FDA-Public Use
  Company Number: NVSC2020NG185232

PATIENT
  Age: 44 Year
  Sex: Female

DRUGS (3)
  1. DASATINIB. [Suspect]
     Active Substance: DASATINIB
     Indication: PRODUCT USED FOR UNKNOWN INDICATION
     Dosage: UNK
     Route: 065
  2. PONATINIB [Suspect]
     Active Substance: PONATINIB
     Indication: PRODUCT USED FOR UNKNOWN INDICATION
     Dosage: UNK
     Route: 065
     Dates: start: 201905
  3. GLIVEC [Suspect]
     Active Substance: IMATINIB MESYLATE
     Indication: CHRONIC MYELOID LEUKAEMIA
     Dosage: UNK
     Route: 065

REACTIONS (9)
  - Pleural effusion [Unknown]
  - Hepatomegaly [Unknown]
  - Pericardial effusion [Unknown]
  - Weight decreased [Unknown]
  - Pulmonary tuberculosis [Fatal]
  - Respiratory disorder [Unknown]
  - Chronic myeloid leukaemia transformation [Fatal]
  - Acute myeloid leukaemia [Fatal]
  - Drug resistance [Unknown]

NARRATIVE: CASE EVENT DATE: 20190207
